FAERS Safety Report 9669513 (Version 2)
Quarter: 2013Q4

REPORT INFORMATION
  Report Type: Spontaneous
  Country: CZ (occurrence: CZ)
  Receive Date: 20131105
  Receipt Date: 20131105
  Transmission Date: 20140711
  Serious: Yes (Other)
  Sender: FDA-Public Use
  Company Number: CZ-UCBSA-058329

PATIENT
  Age: 55 Year
  Sex: Female

DRUGS (2)
  1. CIMZIA [Suspect]
     Indication: RHEUMATOID ARTHRITIS
     Dates: start: 20120328
  2. MUTAFLOR [Concomitant]
     Indication: FUNCTIONAL GASTROINTESTINAL DISORDER

REACTIONS (6)
  - Nephropathy [Unknown]
  - Renal failure [Unknown]
  - Gastrointestinal disorder [Recovering/Resolving]
  - Vascular pain [Unknown]
  - Urticaria [Recovered/Resolved]
  - Sjogren^s syndrome [Recovering/Resolving]
